FAERS Safety Report 15243016 (Version 2)
Quarter: 2018Q3

REPORT INFORMATION
  Report Type: Spontaneous
  Country: CA (occurrence: CA)
  Receive Date: 20180806
  Receipt Date: 20180913
  Transmission Date: 20181010
  Serious: Yes (Other)
  Sender: FDA-Public Use
  Company Number: CA-CELLTRION INC.-2017CA011076

PATIENT

DRUGS (4)
  1. INFLECTRA [Suspect]
     Active Substance: INFLIXIMAB-DYYB
     Dosage: 400 MG, CYCLIC, EVERY 8 WEEKS
     Route: 042
     Dates: start: 20180802
  2. INFLECTRA [Suspect]
     Active Substance: INFLIXIMAB-DYYB
     Indication: CROHN^S DISEASE
     Dosage: 400 MG, CYCLIC (EVERY 2, 6 WEEKS,THEN EVERY 8 WEEKS)
     Route: 042
     Dates: start: 20170802
  3. INFLECTRA [Suspect]
     Active Substance: INFLIXIMAB-DYYB
     Dosage: 400 MG, CYCLIC, EVERY 2, 6 WEEKS, THEN EVERY 8 WEEKS
     Route: 042
     Dates: start: 20180620
  4. PREDNISONE. [Concomitant]
     Active Substance: PREDNISONE
     Dosage: 40 MG, UNK
     Dates: start: 201707, end: 201710

REACTIONS (7)
  - Loss of personal independence in daily activities [Unknown]
  - Weight increased [Unknown]
  - Product use issue [Unknown]
  - Foot fracture [Unknown]
  - Flatulence [Unknown]
  - Abdominal distension [Unknown]
  - Ankle fracture [Unknown]

NARRATIVE: CASE EVENT DATE: 201807
